FAERS Safety Report 4395182-4 (Version None)
Quarter: 2004Q3

REPORT INFORMATION
  Report Type: 
  Country: None (occurrence: None)
  Receive Date: 20040706
  Receipt Date: 20040625
  Transmission Date: 20050211
  Serious: Yes (Hospitalization)
  Sender: FDA-Public Use
  Company Number: K200400412

PATIENT
  Age: 59 Year
  Sex: Male

DRUGS (4)
  1. ALTACE [Suspect]
     Indication: HYPERTENSION
     Dosage: 10 MG, QD, ORAL
     Route: 048
     Dates: start: 20030301, end: 20031101
  2. METFORMIN HCL [Concomitant]
  3. SIMVASTATIN [Concomitant]
  4. BENDROFLUAZIDE [Concomitant]

REACTIONS (4)
  - BACK PAIN [None]
  - RENAL IMPAIRMENT [None]
  - RETROPERITONEAL FIBROSIS [None]
  - URETERIC OBSTRUCTION [None]
